FAERS Safety Report 17331863 (Version 1)
Quarter: 2020Q1

REPORT INFORMATION
  Report Type: Report from Study
  Country: CO (occurrence: CO)
  Receive Date: 20200128
  Receipt Date: 20200128
  Transmission Date: 20200409
  Serious: Yes (Other)
  Sender: FDA-Public Use
  Company Number: CO-ROCHE-2433732

PATIENT
  Sex: Female

DRUGS (3)
  1. ACTEMRA [Suspect]
     Active Substance: TOCILIZUMAB
     Indication: PRODUCT USED FOR UNKNOWN INDICATION
     Route: 065
  2. METOTREXATE [Concomitant]
     Active Substance: METHOTREXATE SODIUM
  3. MABTHERA [Suspect]
     Active Substance: RITUXIMAB
     Indication: PRODUCT USED FOR UNKNOWN INDICATION
     Route: 065

REACTIONS (13)
  - Pain in extremity [Unknown]
  - Onychalgia [Unknown]
  - Skin ulcer [Unknown]
  - Pain [Unknown]
  - Vomiting [Unknown]
  - Bone cyst [Unknown]
  - Gait disturbance [Unknown]
  - Fall [Unknown]
  - Feeling abnormal [Unknown]
  - Malaise [Unknown]
  - Haemorrhage [Unknown]
  - Gastric ulcer [Unknown]
  - Arthralgia [Unknown]
